FAERS Safety Report 4345097-2 (Version None)
Quarter: 2004Q2

REPORT INFORMATION
  Report Type: 
  Country: None (occurrence: None)
  Receive Date: 20040421
  Receipt Date: 20040421
  Transmission Date: 20050107
  Serious: Yes (Hospitalization)
  Sender: FDA-Public Use
  Company Number: None

PATIENT
  Age: 73 Year
  Sex: Female
  Weight: 1 kg

DRUGS (2)
  1. GEMCITABINE [Suspect]
  2. EXISULIND [Suspect]

REACTIONS (1)
  - PLEURAL EFFUSION [None]
